FAERS Safety Report 14001975 (Version 2)
Quarter: 2017Q4

REPORT INFORMATION
  Report Type: Spontaneous
  Country: GB (occurrence: GB)
  Receive Date: 20170922
  Receipt Date: 20171010
  Transmission Date: 20180321
  Serious: Yes (Hospitalization)
  Sender: FDA-Public Use
  Company Number: GB-NOVOPROD-563776

PATIENT
  Age: 78 Year
  Sex: Female

DRUGS (41)
  1. DULOXETINE. [Concomitant]
     Active Substance: DULOXETINE
     Dosage: 60 MILLIGRAM DAILY;
  2. OMEPRAZOLE. [Concomitant]
     Active Substance: OMEPRAZOLE
     Dosage: 40 MILLIGRAM DAILY;
  3. ESTRADIOL. [Suspect]
     Active Substance: ESTRADIOL
     Indication: PRODUCT USED FOR UNKNOWN INDICATION
     Dosage: UNK
     Route: 065
  4. COLESTYRAMINE [Concomitant]
     Active Substance: CHOLESTYRAMINE
  5. COLESTYRAMINE [Concomitant]
     Active Substance: CHOLESTYRAMINE
     Dosage: 12 GRAM DAILY;
  6. GABAPENTIN. [Concomitant]
     Active Substance: GABAPENTIN
     Dosage: 900 MILLIGRAM DAILY;
  7. LOPERAMIDE [Concomitant]
     Active Substance: LOPERAMIDE
     Dosage: 2 MG AS NECESSARY
     Route: 065
  8. MEBEVERINE [Concomitant]
     Active Substance: MEBEVERINE
     Dosage: 405 MILLIGRAM DAILY;
  9. LACTULOSE. [Concomitant]
     Active Substance: LACTULOSE
     Dosage: TWICE A DAY.1-3.7G/5M
  10. ALFACALCIDOL [Concomitant]
     Active Substance: ALFACALCIDOL
  11. NITRAZEPAM [Concomitant]
     Active Substance: NITRAZEPAM
     Dosage: 5 MILLIGRAM DAILY;
  12. PREDNISOLONE. [Concomitant]
     Active Substance: PREDNISOLONE
     Dosage: 2.5 MILLIGRAM DAILY;
  13. VAGIFEM [Concomitant]
     Active Substance: ESTRADIOL
     Dosage: 2.8571 MICROGRAM DAILY;
  14. EPADERM [Concomitant]
     Active Substance: MINERAL OIL\PETROLATUM\WAX, EMULSIFYING
     Dosage: USE AS DIRECTED
  15. DULOXETINE. [Concomitant]
     Active Substance: DULOXETINE
  16. FUROSEMIDE. [Concomitant]
     Active Substance: FUROSEMIDE
     Dosage: 80 MILLIGRAM DAILY;
  17. GABAPENTIN. [Concomitant]
     Active Substance: GABAPENTIN
  18. MEBEVERINE [Concomitant]
     Active Substance: MEBEVERINE
  19. FOLIC ACID. [Concomitant]
     Active Substance: FOLIC ACID
  20. SIMVASTATIN. [Concomitant]
     Active Substance: SIMVASTATIN
     Dosage: NIGHT
  21. LACRI-LUBE [Concomitant]
     Dosage: AS DIRECTED
     Route: 050
  22. XYLOPROCT                          /02344701/ [Concomitant]
     Dosage: 5%/0.275%
  23. VENTOLIN [Concomitant]
     Active Substance: ALBUTEROL SULFATE
     Dosage: 200 ?G, UNK
     Route: 055
  24. ACLIDINIUM BROMIDE. [Concomitant]
     Active Substance: ACLIDINIUM BROMIDE
     Dosage: 375 ?G, BID
     Route: 055
  25. ADCAL D3 [Concomitant]
     Active Substance: CALCIUM CARBONATE\CHOLECALCIFEROL
  26. FOLIC ACID. [Concomitant]
     Active Substance: FOLIC ACID
     Dosage: 5 MILLIGRAM DAILY;
  27. FUROSEMIDE. [Concomitant]
     Active Substance: FUROSEMIDE
     Dosage: MORNING AND LUNCHTIME
  28. IBUPROFEN. [Concomitant]
     Active Substance: IBUPROFEN
     Dosage: 1 TAB, TID; APPLY
  29. LIDOCAINE. [Concomitant]
     Active Substance: LIDOCAINE
     Dosage: IN EACH KNEE
  30. COCODAMOL [Concomitant]
     Active Substance: ACETAMINOPHEN\CODEINE PHOSPHATE
     Dosage: 30MG/500MG TAKE ONE OR TWO FOUR TIMES/DAY
  31. DIPYRIDAMOLE. [Concomitant]
     Active Substance: DIPYRIDAMOLE
  32. OMEPRAZOLE. [Concomitant]
     Active Substance: OMEPRAZOLE
  33. PREDNISOLONE. [Concomitant]
     Active Substance: PREDNISOLONE
     Dosage: NIGHT
  34. ALFACALCIDOL [Concomitant]
     Active Substance: ALFACALCIDOL
     Dosage: 1 MICROGRAM DAILY;
  35. ASPIRIN                            /00002701/ [Concomitant]
     Active Substance: ASPIRIN
  36. DIPYRIDAMOLE. [Concomitant]
     Active Substance: DIPYRIDAMOLE
     Dosage: 400 MILLIGRAM DAILY;
  37. LOPERAMIDE [Concomitant]
     Active Substance: LOPERAMIDE
     Indication: CROHN^S DISEASE
     Dosage: AS DIRECTED
  38. NITRAZEPAM [Concomitant]
     Active Substance: NITRAZEPAM
     Dosage: NIGHT
  39. LACRI-LUBE [Concomitant]
     Route: 047
  40. VAGIFEM [Concomitant]
     Active Substance: ESTRADIOL
     Route: 067
  41. EPILIM [Concomitant]
     Active Substance: VALPROATE SODIUM
     Dosage: 2 TAB, BID

REACTIONS (1)
  - Pulmonary embolism [Unknown]
